FAERS Safety Report 23886852 (Version 1)
Quarter: 2024Q2

REPORT INFORMATION
  Report Type: Spontaneous
  Country: CN (occurrence: CN)
  Receive Date: 20240522
  Receipt Date: 20240522
  Transmission Date: 20240716
  Serious: Yes (Other)
  Sender: FDA-Public Use
  Company Number: CN-BEIGENE-BGN-2024-007513

PATIENT

DRUGS (8)
  1. TISLELIZUMAB [Suspect]
     Active Substance: TISLELIZUMAB
     Indication: Nonkeratinising carcinoma of nasopharynx
     Dosage: 200 MILLIGRAM
     Route: 041
     Dates: start: 20240424
  2. CARBOPLATIN [Suspect]
     Active Substance: CARBOPLATIN
     Indication: Nonkeratinising carcinoma of nasopharynx
     Dosage: 400 MILLIGRAM
     Route: 041
     Dates: start: 20240424
  3. DOCETAXEL [Suspect]
     Active Substance: DOCETAXEL\DOCETAXEL ANHYDROUS
     Indication: Nonkeratinising carcinoma of nasopharynx
     Dosage: 105 MILLIGRAM
     Route: 041
     Dates: start: 20240424
  4. FLUOROURACIL [Suspect]
     Active Substance: FLUOROURACIL
     Indication: Nonkeratinising carcinoma of nasopharynx
     Dosage: 5.2 GRAM
     Route: 041
     Dates: start: 20240424
  5. SODIUM CHLORIDE [Concomitant]
     Active Substance: SODIUM CHLORIDE
     Indication: Vehicle solution use
     Dosage: 100 MILLILITER
     Route: 041
     Dates: start: 20240424
  6. SODIUM CHLORIDE [Concomitant]
     Active Substance: SODIUM CHLORIDE
     Dosage: 250 MILLILITER
     Route: 041
     Dates: start: 20240424
  7. SODIUM CHLORIDE [Concomitant]
     Active Substance: SODIUM CHLORIDE
     Dosage: 230 MILLILITER
     Route: 041
     Dates: start: 20240424
  8. DEXTROSE [Concomitant]
     Active Substance: DEXTROSE\DEXTROSE MONOHYDRATE
     Indication: Vehicle solution use
     Dosage: 500 MILLILITER
     Route: 041
     Dates: start: 20240424

REACTIONS (1)
  - Myelosuppression [Recovering/Resolving]

NARRATIVE: CASE EVENT DATE: 20240503
